FAERS Safety Report 4510605-5 (Version None)
Quarter: 2004Q4

REPORT INFORMATION
  Report Type: 
  Country: None (occurrence: None)
  Receive Date: 20041124
  Receipt Date: 20031007
  Transmission Date: 20050328
  Serious: Yes (Hospitalization)
  Sender: FDA-Public Use
  Company Number: JP-ABBOTT-03P-087-0236560-00

PATIENT
  Sex: Male

DRUGS (8)
  1. KALETRA [Suspect]
     Indication: HIV INFECTION
     Route: 048
     Dates: start: 20021206, end: 20040305
  2. DIDANOSINE [Suspect]
     Indication: HIV INFECTION
     Route: 048
     Dates: end: 20040108
  3. LAMIVUDINE [Suspect]
     Indication: HIV INFECTION
     Route: 048
     Dates: end: 20040305
  4. EFAVIRENZ [Suspect]
     Indication: HIV INFECTION
     Route: 048
     Dates: end: 20021205
  5. BACTRIM [Concomitant]
     Indication: PNEUMONITIS TOXOPLASMAL
     Route: 048
     Dates: end: 20040305
  6. BACTRIM [Concomitant]
     Indication: INFECTION PROPHYLAXIS
  7. VALPROATE SODIUM [Concomitant]
     Indication: MENTAL DISORDER
     Route: 048
     Dates: start: 20020209, end: 20031102
  8. ABACAVIR [Concomitant]
     Indication: HIV INFECTION
     Route: 048
     Dates: start: 20040109, end: 20040305

REACTIONS (5)
  - ADJUSTMENT DISORDER [None]
  - HYPERLIPIDAEMIA [None]
  - HYPOAESTHESIA [None]
  - NEUROSYPHILIS [None]
  - PAIN IN EXTREMITY [None]
